FAERS Safety Report 10788142 (Version 1)
Quarter: 2015Q1

REPORT INFORMATION
  Report Type: Spontaneous
  Country: US (occurrence: US)
  Receive Date: 20150212
  Receipt Date: 20150212
  Transmission Date: 20150721
  Serious: No
  Sender: FDA-Public Use
  Company Number: US-GLAXOSMITHKLINE-A1076944A

PATIENT

DRUGS (6)
  1. DIAZEPAM. [Concomitant]
     Active Substance: DIAZEPAM
  2. ADVAIR DISKUS [Suspect]
     Active Substance: FLUTICASONE PROPIONATE\SALMETEROL XINAFOATE
     Indication: CHRONIC OBSTRUCTIVE PULMONARY DISEASE
     Dosage: 250/50
     Route: 055
     Dates: start: 20140610
  3. NEBULIZER [Concomitant]
     Active Substance: UNSPECIFIED INGREDIENT
  4. ZOLOFT [Concomitant]
     Active Substance: SERTRALINE HYDROCHLORIDE
  5. PAIN MEDICATIONS [Concomitant]
     Active Substance: UNSPECIFIED INGREDIENT
  6. ALBUTEROL + IPRATROPIUM BROMIDE NEBULISER SOLUTION [Suspect]
     Active Substance: ALBUTEROL\IPRATROPIUM BROMIDE
     Route: 055

REACTIONS (2)
  - Drug ineffective [Unknown]
  - Malaise [Unknown]
